FAERS Safety Report 16582718 (Version 1)
Quarter: 2019Q3

REPORT INFORMATION
  Report Type: Spontaneous
  Country: US (occurrence: US)
  Receive Date: 20190603
  Receipt Date: 20190603
  Transmission Date: 20191004
  Serious: No
  Sender: FDA-Public Use
  Company Number: None

PATIENT
  Age: 69 Year
  Sex: Male

DRUGS (2)
  1. COSENTYX [Suspect]
     Active Substance: SECUKINUMAB
     Indication: PSORIASIS
     Dosage: INJECT 300MG (2 PENS) SUBCUTANEOUSLY ONCE A  WEEK FOR 5 WEEKS  AS DIRECTED
     Route: 058
     Dates: start: 201803
  2. COSENTYX [Suspect]
     Active Substance: SECUKINUMAB
     Indication: PSORIATIC ARTHROPATHY
     Dosage: INJECT 300MG (2 PENS) SUBCUTANEOUSLY ONCE A  WEEK FOR 5 WEEKS  AS DIRECTED
     Route: 058
     Dates: start: 201803

REACTIONS (3)
  - Malignant melanoma [None]
  - Therapy cessation [None]
  - Tuberculin test positive [None]
